FAERS Safety Report 14941264 (Version 1)
Quarter: 2018Q2

REPORT INFORMATION
  Report Type: Spontaneous
  Country: DE (occurrence: DE)
  Receive Date: 20180525
  Receipt Date: 20180525
  Transmission Date: 20180711
  Serious: Yes (Other)
  Sender: FDA-Public Use
  Company Number: DE-TEVA-2018-DE-896350

PATIENT
  Sex: Male

DRUGS (11)
  1. URIDUCT 2 MG [Suspect]
     Active Substance: DOXAZOSIN MESYLATE
     Dosage: 2 MILLIGRAM DAILY;
     Route: 065
  2. BISOPROLOL [Suspect]
     Active Substance: BISOPROLOL
     Route: 065
  3. TARGIN 10/5MG [Suspect]
     Active Substance: NALOXONE HYDROCHLORIDE\OXYCODONE HYDROCHLORIDE
     Route: 065
  4. ALLOPURINOL. [Suspect]
     Active Substance: ALLOPURINOL
     Dosage: 100 MILLIGRAM DAILY;
     Route: 065
  5. NOVOTHYRAL 100MG [Suspect]
     Active Substance: LEVOTHYROXINE SODIUM\LIOTHYRONINE SODIUM
     Dosage: 100 MILLIGRAM DAILY;
     Route: 065
  6. TORASEMID 10MG [Suspect]
     Active Substance: TORSEMIDE
     Dosage: 10 MILLIGRAM DAILY;
     Route: 065
  7. COLECALCIFEROL 20.000 IE [Suspect]
     Active Substance: CHOLECALCIFEROL
     Route: 065
  8. SPIRONOLACTONE. [Suspect]
     Active Substance: SPIRONOLACTONE
     Dosage: 25 MILLIGRAM DAILY;
     Route: 065
  9. ELIQUIS [Suspect]
     Active Substance: APIXABAN
     Route: 065
  10. SIMVASTATIN. [Suspect]
     Active Substance: SIMVASTATIN
     Dosage: 10 MILLIGRAM DAILY;
     Route: 065
  11. DIGIMERCK 0.1MG [Suspect]
     Active Substance: DIGITOXIN
     Dosage: .1 MILLIGRAM DAILY;
     Route: 065

REACTIONS (1)
  - Lenticular opacities [Unknown]
